FAERS Safety Report 17940706 (Version 3)
Quarter: 2020Q3

REPORT INFORMATION
  Report Type: Report from Study
  Country: US (occurrence: US)
  Receive Date: 20200624
  Receipt Date: 20200904
  Transmission Date: 20201103
  Serious: Yes (Hospitalization)
  Sender: FDA-Public Use
  Company Number: US-EISAI MEDICAL RESEARCH-EC-2020-075549

PATIENT
  Age: 66 Year
  Sex: Male

DRUGS (14)
  1. CIPROFLOXACIN HCL [Concomitant]
     Active Substance: CIPROFLOXACIN HYDROCHLORIDE
  2. MULTIVITAMIN/DAILY VITE [Concomitant]
  3. TYLENOL [Concomitant]
     Active Substance: ACETAMINOPHEN
  4. FENOFIBRATE. [Concomitant]
     Active Substance: FENOFIBRATE
  5. ONDANSETRON HCL [Concomitant]
     Active Substance: ONDANSETRON HYDROCHLORIDE
  6. HYDROCODONE/ACETAMINOPHEN [Concomitant]
     Active Substance: ACETAMINOPHEN\HYDROCODONE
     Dosage: 5MG?32
  7. TRAMADOL. [Concomitant]
     Active Substance: TRAMADOL
  8. FUROSEMIDE. [Concomitant]
     Active Substance: FUROSEMIDE
  9. METRONIDAZOLE. [Concomitant]
     Active Substance: METRONIDAZOLE
  10. PANTOPRAZOLE SODIUM. [Concomitant]
     Active Substance: PANTOPRAZOLE SODIUM
  11. FLUCONAZOLE. [Concomitant]
     Active Substance: FLUCONAZOLE
  12. LENVIMA [Suspect]
     Active Substance: LENVATINIB
     Indication: HEPATOCELLULAR CARCINOMA
     Route: 048
     Dates: start: 20200310, end: 20200611
  13. PRILOSEC [Concomitant]
     Active Substance: OMEPRAZOLE MAGNESIUM
  14. LENVIMA [Suspect]
     Active Substance: LENVATINIB
     Route: 048
     Dates: start: 2020, end: 2020

REACTIONS (12)
  - Diarrhoea [Unknown]
  - Acute kidney injury [Unknown]
  - Gastrointestinal necrosis [Unknown]
  - Fatigue [Unknown]
  - Arthralgia [Unknown]
  - Intestinal obstruction [Unknown]
  - Myalgia [Unknown]
  - Volvulus [Unknown]
  - Vomiting [Unknown]
  - Abdominal pain [Unknown]
  - Urinary retention [Unknown]
  - Blood bilirubin increased [Recovering/Resolving]

NARRATIVE: CASE EVENT DATE: 2020
